FAERS Safety Report 4986112-2 (Version None)
Quarter: 2006Q2

REPORT INFORMATION
  Report Type: 
  Country: None (occurrence: None)
  Receive Date: 20060428
  Receipt Date: 20060420
  Transmission Date: 20061013
  Serious: Yes (Other)
  Sender: FDA-Public Use
  Company Number: PT-JNJFOC-20060405080

PATIENT
  Sex: Male

DRUGS (3)
  1. REMINYL [Suspect]
     Indication: DEMENTIA
     Route: 048
  2. FLUOXETINE [Concomitant]
  3. ANXIOLYTICS [Concomitant]

REACTIONS (3)
  - AGGRESSION [None]
  - PSYCHOTIC DISORDER [None]
  - SUICIDAL IDEATION [None]
